FAERS Safety Report 15922287 (Version 1)
Quarter: 2019Q1

REPORT INFORMATION
  Report Type: Spontaneous
  Country: US (occurrence: US)
  Receive Date: 20190115
  Receipt Date: 20190115
  Transmission Date: 20190417
  Serious: Yes (Other)
  Sender: FDA-Public Use
  Company Number: None

PATIENT
  Age: 48 Year

DRUGS (1)
  1. HALOPERIDOL. [Suspect]
     Active Substance: HALOPERIDOL
     Dosage: ?          OTHER DOSE:2.5MG;?
     Route: 048
     Dates: start: 20181225

REACTIONS (1)
  - Extrapyramidal disorder [None]

NARRATIVE: CASE EVENT DATE: 20181225
